FAERS Safety Report 25915312 (Version 1)
Quarter: 2025Q4

REPORT INFORMATION
  Report Type: Other
  Country: EU (occurrence: EU)
  Receive Date: 20251013
  Receipt Date: 20251013
  Transmission Date: 20260118
  Serious: Yes (Hospitalization)
  Sender: INCYTE
  Company Number: None

PATIENT
  Age: 56 Year
  Weight: 52.8 kg

DRUGS (5)
  1. RUXOLITINIB [Suspect]
     Active Substance: RUXOLITINIB
     Indication: Morphoea
     Dosage: 15 MG, Q12H
  2. RUXOLITINIB [Suspect]
     Active Substance: RUXOLITINIB
     Dosage: 15 MG, Q12H
  3. CERTICAN [Interacting]
     Active Substance: EVEROLIMUS
     Indication: Morphoea
     Dosage: 1 DOSAGE FORM, Q12H
  4. CERTICAN [Interacting]
     Active Substance: EVEROLIMUS
     Dosage: 1 DOSAGE FORM, QD
  5. CRESEMBA [Interacting]
     Active Substance: ISAVUCONAZONIUM SULFATE
     Indication: Actinomycotic pulmonary infection
     Dosage: 100 MG, QD

REACTIONS (1)
  - Hypertension [Recovered/Resolved]
